FAERS Safety Report 8974458 (Version 6)
Quarter: 2014Q1

REPORT INFORMATION
  Report Type: Spontaneous
  Country: US (occurrence: US)
  Receive Date: 20121219
  Receipt Date: 20140106
  Transmission Date: 20141002
  Serious: Yes (Hospitalization, Disabling, Other)
  Sender: FDA-Public Use
  Company Number: US-009507513-1212USA006798

PATIENT
  Sex: Female
  Weight: 56.69 kg

DRUGS (4)
  1. FOSAMAX [Suspect]
     Indication: OSTEOPENIA
     Dosage: 70 MG, QW
     Route: 048
     Dates: start: 20010106, end: 20080312
  2. FOSAMAX PLUS D [Suspect]
     Indication: OSTEOPENIA
     Dosage: 70 MG, QW
     Route: 048
     Dates: end: 20080312
  3. SIMVASTATIN [Concomitant]
     Indication: BLOOD CHOLESTEROL INCREASED
     Dosage: 40 MG, QD
     Dates: start: 2000
  4. FUROSEMIDE [Concomitant]
     Indication: HYPERTENSION
     Dosage: 20 MG, QD
     Dates: start: 2000

REACTIONS (41)
  - Intramedullary rod insertion [Unknown]
  - Low turnover osteopathy [Not Recovered/Not Resolved]
  - Cardiac failure congestive [Unknown]
  - Femur fracture [Unknown]
  - Subarachnoid haemorrhage [Unknown]
  - Loss of consciousness [Unknown]
  - Pyrexia [Unknown]
  - Nausea [Unknown]
  - Gastritis [Unknown]
  - Femur fracture [Unknown]
  - Depression [Unknown]
  - Anxiety [Unknown]
  - Peptic ulcer [Unknown]
  - Calcium deficiency [Unknown]
  - Chest discomfort [Unknown]
  - Thoracic vertebral fracture [Unknown]
  - Bacterial test positive [Unknown]
  - Rales [Unknown]
  - Anaemia [Unknown]
  - Compression fracture [Unknown]
  - Cardiac failure congestive [Not Recovered/Not Resolved]
  - Osteoarthritis [Unknown]
  - Thrombocytopenia [Unknown]
  - Vitamin D deficiency [Unknown]
  - Cataract operation [Unknown]
  - Anxiety [Unknown]
  - Deformity [Unknown]
  - Spinal osteoarthritis [Unknown]
  - Pubis fracture [Unknown]
  - Osteitis [Unknown]
  - Vascular calcification [Unknown]
  - Diverticulum [Unknown]
  - Facet joint syndrome [Unknown]
  - Arthritis [Unknown]
  - Intervertebral disc degeneration [Unknown]
  - Decubitus ulcer [Unknown]
  - Exostosis [Unknown]
  - Pollakiuria [Unknown]
  - Vertigo [Unknown]
  - Musculoskeletal pain [Unknown]
  - Gastrooesophageal reflux disease [Unknown]
